FAERS Safety Report 7611336-5 (Version None)
Quarter: 2011Q3

REPORT INFORMATION
  Report Type: 
  Country: None (occurrence: None)
  Receive Date: 20110715
  Receipt Date: 20110712
  Transmission Date: 20111222
  Serious: Yes (Other)
  Sender: FDA-Public Use
  Company Number: US-ROCHE-537338

PATIENT
  Age: 85 Year
  Sex: Female

DRUGS (3)
  1. GLUCOSAMINE [Concomitant]
  2. BONIVA [Suspect]
     Indication: OSTEOPOROSIS
     Route: 065
  3. CHONDROITIN [Concomitant]
     Dosage: DRUG REPORTED AS CHONDROINTIN

REACTIONS (3)
  - HIP FRACTURE [None]
  - PAIN IN EXTREMITY [None]
  - STOMATITIS [None]
